FAERS Safety Report 14600113 (Version 1)
Quarter: 2018Q1

REPORT INFORMATION
  Report Type: Spontaneous
  Country: PT (occurrence: PT)
  Receive Date: 20180305
  Receipt Date: 20180305
  Transmission Date: 20180509
  Serious: Yes (Death, Hospitalization, Other)
  Sender: FDA-Public Use
  Company Number: PT-SA-2018SA057745

PATIENT
  Age: 72 Year
  Sex: Female

DRUGS (1)
  1. ENOXAPARIN SODIUM. [Suspect]
     Active Substance: ENOXAPARIN SODIUM
     Indication: ATRIAL FIBRILLATION
     Route: 058
     Dates: start: 20171031, end: 20171123

REACTIONS (2)
  - Venous thrombosis [Fatal]
  - Retroperitoneal haematoma [Fatal]

NARRATIVE: CASE EVENT DATE: 20171123
